FAERS Safety Report 5506366-3 (Version None)
Quarter: 2007Q4

REPORT INFORMATION
  Report Type: 
  Country: None (occurrence: None)
  Receive Date: 20071101
  Receipt Date: 20071011
  Transmission Date: 20080405
  Serious: Yes (Hospitalization)
  Sender: FDA-Public Use
  Company Number: 2007US002527

PATIENT
  Age: 54 Year
  Sex: Male

DRUGS (9)
  1. PROGRAF [Suspect]
     Indication: LIVER TRANSPLANT
     Dosage: 3 MG, BID, ORAL
     Route: 048
     Dates: start: 20070523
  2. MYCOPHENOLATE MOFETIL [Suspect]
     Indication: LIVER TRANSPLANT
     Dosage: 1000 MG, BID, ORAL
     Route: 048
     Dates: start: 20070622
  3. LAMIVUDINE [Concomitant]
  4. PANTOPRAZOLE SODIUM [Concomitant]
  5. VALGANCICLOVIR HCL [Concomitant]
  6. BACTRIM DS [Concomitant]
  7. COLACE (DOCUSATE SODIUM) [Concomitant]
  8. INSULIN (INSULIN HUMAN) [Concomitant]
  9. LOPRESSOR [Concomitant]

REACTIONS (6)
  - DISEASE RECURRENCE [None]
  - DYSURIA [None]
  - HEPATITIS C [None]
  - MALAISE [None]
  - NAUSEA [None]
  - PYREXIA [None]
